FAERS Safety Report 7159444-X (Version None)
Quarter: 2010Q4

REPORT INFORMATION
  Report Type: 
  Country: None (occurrence: None)
  Receive Date: 20101214
  Receipt Date: 20100903
  Transmission Date: 20110411
  Serious: No
  Sender: FDA-Public Use
  Company Number: US-ASTRAZENECA-2010SE41794

PATIENT
  Age: 53 Year
  Sex: Female
  Weight: 163.3 kg

DRUGS (11)
  1. CRESTOR [Suspect]
     Route: 048
  2. VICTOZA [Concomitant]
     Indication: DIABETES MELLITUS
  3. METFORMIN [Concomitant]
     Indication: DIABETES MELLITUS
  4. GLIMEPIRIDE [Concomitant]
     Indication: DIABETES MELLITUS
  5. JANUVIA [Concomitant]
     Indication: DIABETES MELLITUS
  6. DIOVAN [Concomitant]
     Indication: HYPERTENSION
  7. HYDROCHLOROTHIAZIDE [Concomitant]
     Indication: HYPERTENSION
  8. PROPRANOLOL [Concomitant]
     Indication: HYPERTENSION
  9. NIACIN [Concomitant]
     Indication: BLOOD CHOLESTEROL
  10. LOVAZA [Concomitant]
     Indication: BLOOD CHOLESTEROL
  11. ASPIRIN [Concomitant]

REACTIONS (4)
  - BLOOD CREATINE PHOSPHOKINASE INCREASED [None]
  - DRUG DOSE OMISSION [None]
  - INAPPROPRIATE SCHEDULE OF DRUG ADMINISTRATION [None]
  - MUSCULAR WEAKNESS [None]
